FAERS Safety Report 12190257 (Version 1)
Quarter: 2016Q1

REPORT INFORMATION
  Report Type: Spontaneous
  Country: JO (occurrence: JO)
  Receive Date: 20160318
  Receipt Date: 20160318
  Transmission Date: 20160526
  Serious: Yes (Hospitalization)
  Sender: FDA-Public Use
  Company Number: JO-FRESENIUS KABI-FK201601344

PATIENT
  Age: 54 Year
  Sex: Female

DRUGS (5)
  1. CYCLOPHOSPHAMIDE (MANUFACTURER UNKNOWN) [Suspect]
     Active Substance: CYCLOPHOSPHAMIDE
     Indication: BREAST CANCER
     Route: 065
     Dates: start: 201210
  2. CEFIXIME. [Concomitant]
     Active Substance: CEFIXIME
     Route: 048
  3. IMIPENEM [Concomitant]
     Active Substance: IMIPENEM
  4. DOXORUBICIN (MANUFACTURER UNKNOWN) [Suspect]
     Active Substance: DOXORUBICIN
     Indication: BREAST CANCER
     Route: 065
     Dates: start: 201210
  5. DOCETAXEL (MANUFACTURER UNKNOWN) [Suspect]
     Active Substance: DOCETAXEL
     Indication: BREAST CANCER
     Route: 065
     Dates: start: 201210

REACTIONS (1)
  - Psoas abscess [Recovered/Resolved]
